FAERS Safety Report 7405125-4 (Version None)
Quarter: 2011Q1

REPORT INFORMATION
  Report Type: 
  Country: None (occurrence: None)
  Receive Date: 20110301
  Receipt Date: 20100316
  Transmission Date: 20110831
  Serious: Yes (Other)
  Sender: FDA-Public Use
  Company Number: RB-04779-2010

PATIENT
  Sex: Female
  Weight: 3.5834 kg

DRUGS (3)
  1. SUBUTEX [Suspect]
     Indication: DRUG DEPENDENCE
     Dosage: 8 MG TID TRANSPLACENTAL, 8 MG TID TRANSMAMMARY
     Route: 064
     Dates: start: 20091110
  2. SUBUTEX [Suspect]
     Indication: DRUG DEPENDENCE
     Dosage: 8 MG TID TRANSPLACENTAL, 8 MG TID TRANSMAMMARY
     Route: 064
     Dates: start: 20090101, end: 20091109
  3. SUBOXONE [Suspect]
     Indication: DRUG DEPENDENCE
     Dosage: 8 MG TID  TRANSPLACENTAL
     Route: 064
     Dates: start: 20090101, end: 20090101

REACTIONS (2)
  - DRUG WITHDRAWAL SYNDROME NEONATAL [None]
  - DRUG EXPOSURE VIA BREAST MILK [None]
